FAERS Safety Report 23059237 (Version 1)
Quarter: 2023Q4

REPORT INFORMATION
  Report Type: Other
  Country: MX (occurrence: None)
  Receive Date: 20231012
  Receipt Date: 20231012
  Transmission Date: 20240110
  Serious: Yes (Death)
  Sender: FDA-Public Use
  Company Number: MX-ROCHE-3436996

PATIENT

DRUGS (44)
  1. RITUXIMAB [Suspect]
     Active Substance: RITUXIMAB
     Indication: Systemic lupus erythematosus
     Route: 065
  2. RITUXIMAB [Suspect]
     Active Substance: RITUXIMAB
     Indication: Polymyositis
  3. RITUXIMAB [Suspect]
     Active Substance: RITUXIMAB
     Indication: Dermatomyositis
  4. TOCILIZUMAB [Suspect]
     Active Substance: TOCILIZUMAB
     Indication: Juvenile idiopathic arthritis
     Route: 065
  5. TOCILIZUMAB [Suspect]
     Active Substance: TOCILIZUMAB
     Indication: Systemic lupus erythematosus
  6. TOCILIZUMAB [Suspect]
     Active Substance: TOCILIZUMAB
     Indication: Polymyositis
  7. TOCILIZUMAB [Suspect]
     Active Substance: TOCILIZUMAB
     Indication: Dermatomyositis
  8. TOCILIZUMAB [Suspect]
     Active Substance: TOCILIZUMAB
     Indication: Uveitis
  9. TOCILIZUMAB [Suspect]
     Active Substance: TOCILIZUMAB
     Indication: Hidradenitis
  10. TOCILIZUMAB [Suspect]
     Active Substance: TOCILIZUMAB
     Indication: Systemic scleroderma
  11. TOCILIZUMAB [Suspect]
     Active Substance: TOCILIZUMAB
     Indication: Chronic infantile neurological cutaneous and articular syndrome
  12. INFLIXIMAB [Suspect]
     Active Substance: INFLIXIMAB
     Indication: Juvenile idiopathic arthritis
     Route: 065
  13. INFLIXIMAB [Suspect]
     Active Substance: INFLIXIMAB
     Indication: Systemic lupus erythematosus
  14. INFLIXIMAB [Suspect]
     Active Substance: INFLIXIMAB
     Indication: Polymyositis
  15. INFLIXIMAB [Suspect]
     Active Substance: INFLIXIMAB
     Indication: Dermatomyositis
  16. INFLIXIMAB [Suspect]
     Active Substance: INFLIXIMAB
     Indication: Uveitis
  17. INFLIXIMAB [Suspect]
     Active Substance: INFLIXIMAB
     Indication: Hidradenitis
  18. INFLIXIMAB [Suspect]
     Active Substance: INFLIXIMAB
     Indication: Systemic scleroderma
  19. INFLIXIMAB [Suspect]
     Active Substance: INFLIXIMAB
     Indication: Chronic infantile neurological cutaneous and articular syndrome
  20. ADALIMUMAB [Suspect]
     Active Substance: ADALIMUMAB
     Indication: Uveitis
     Route: 065
  21. ABATACEPT [Suspect]
     Active Substance: ABATACEPT
     Indication: Juvenile idiopathic arthritis
     Route: 065
  22. ABATACEPT [Suspect]
     Active Substance: ABATACEPT
     Indication: Systemic lupus erythematosus
  23. ABATACEPT [Suspect]
     Active Substance: ABATACEPT
     Indication: Polymyositis
  24. ABATACEPT [Suspect]
     Active Substance: ABATACEPT
     Indication: Dermatomyositis
  25. ABATACEPT [Suspect]
     Active Substance: ABATACEPT
     Indication: Uveitis
  26. ABATACEPT [Suspect]
     Active Substance: ABATACEPT
     Indication: Hidradenitis
  27. ABATACEPT [Suspect]
     Active Substance: ABATACEPT
     Indication: Systemic scleroderma
  28. ABATACEPT [Suspect]
     Active Substance: ABATACEPT
     Indication: Chronic infantile neurological cutaneous and articular syndrome
  29. CANAKINUMAB [Suspect]
     Active Substance: CANAKINUMAB
     Indication: Juvenile idiopathic arthritis
     Route: 065
  30. CANAKINUMAB [Suspect]
     Active Substance: CANAKINUMAB
     Indication: Systemic lupus erythematosus
  31. CANAKINUMAB [Suspect]
     Active Substance: CANAKINUMAB
     Indication: Polymyositis
  32. CANAKINUMAB [Suspect]
     Active Substance: CANAKINUMAB
     Indication: Dermatomyositis
  33. CANAKINUMAB [Suspect]
     Active Substance: CANAKINUMAB
     Indication: Uveitis
  34. CANAKINUMAB [Suspect]
     Active Substance: CANAKINUMAB
     Indication: Hidradenitis
  35. CANAKINUMAB [Suspect]
     Active Substance: CANAKINUMAB
     Indication: Systemic scleroderma
  36. CANAKINUMAB [Suspect]
     Active Substance: CANAKINUMAB
     Indication: Chronic infantile neurological cutaneous and articular syndrome
  37. METHOTREXATE [Suspect]
     Active Substance: METHOTREXATE
     Indication: Juvenile idiopathic arthritis
     Route: 065
  38. METHOTREXATE [Suspect]
     Active Substance: METHOTREXATE
     Indication: Systemic lupus erythematosus
  39. METHOTREXATE [Suspect]
     Active Substance: METHOTREXATE
     Indication: Polymyositis
  40. METHOTREXATE [Suspect]
     Active Substance: METHOTREXATE
     Indication: Dermatomyositis
  41. METHOTREXATE [Suspect]
     Active Substance: METHOTREXATE
     Indication: Uveitis
  42. METHOTREXATE [Suspect]
     Active Substance: METHOTREXATE
     Indication: Hidradenitis
  43. METHOTREXATE [Suspect]
     Active Substance: METHOTREXATE
     Indication: Systemic scleroderma
  44. METHOTREXATE [Suspect]
     Active Substance: METHOTREXATE
     Indication: Chronic infantile neurological cutaneous and articular syndrome

REACTIONS (4)
  - COVID-19 [Fatal]
  - Infection [Unknown]
  - Hypersensitivity [Unknown]
  - Neutropenia [Unknown]
